FAERS Safety Report 6172734-2 (Version None)
Quarter: 2009Q2

REPORT INFORMATION
  Report Type: 
  Country: None (occurrence: None)
  Receive Date: 20090430
  Receipt Date: 20090421
  Transmission Date: 20091009
  Serious: Yes (Other)
  Sender: FDA-Public Use
  Company Number: US-BIOGENIDEC-2008BI024824

PATIENT
  Age: 57 Year
  Sex: Female

DRUGS (7)
  1. TYSABRI [Suspect]
     Indication: MULTIPLE SCLEROSIS
     Route: 042
     Dates: start: 20061012, end: 20080722
  2. ACTONEL [Concomitant]
  3. PROVIGIL [Concomitant]
  4. PROZAC [Concomitant]
  5. ZOCOR [Concomitant]
  6. TRIAMTERENE AND HYDROCHLOROTHIAZIDE [Concomitant]
  7. CORTICOSTEROIDS (NOS) [Concomitant]

REACTIONS (2)
  - BREAST CANCER STAGE II [None]
  - NEOPLASM RECURRENCE [None]
